FAERS Safety Report 8024166-X (Version None)
Quarter: 2012Q1

REPORT INFORMATION
  Report Type: 
  Country: None (occurrence: None)
  Receive Date: 20120105
  Receipt Date: 20120103
  Transmission Date: 20120608
  Serious: Yes (Death)
  Sender: FDA-Public Use
  Company Number: US-PFIZER INC-2011310209

PATIENT
  Age: 39 Year
  Sex: Female

DRUGS (4)
  1. HYDROXYZINE [Suspect]
     Route: 048
  2. CYCLOBENZAPRINE [Suspect]
     Route: 048
  3. TRAZODONE HCL [Suspect]
     Route: 048
  4. CITALOPRAM HYDROBROMIDE [Suspect]
     Route: 048

REACTIONS (4)
  - CARDIAC ARREST [None]
  - RESPIRATORY ARREST [None]
  - TOXICITY TO VARIOUS AGENTS [None]
  - DRUG ABUSE [None]
